FAERS Safety Report 19935921 (Version 1)
Quarter: 2021Q4

REPORT INFORMATION
  Report Type: Spontaneous
  Country: FR (occurrence: FR)
  Receive Date: 20211008
  Receipt Date: 20211008
  Transmission Date: 20220303
  Serious: Yes (Death, Other)
  Sender: FDA-Public Use
  Company Number: FR-OTSUKA-2021_034540

PATIENT
  Age: 16 Month
  Sex: Male

DRUGS (4)
  1. BUSULFAN [Suspect]
     Active Substance: BUSULFAN
     Indication: Bone marrow conditioning regimen
     Dosage: CUMULATIVE AREA UNDER CURVE
     Route: 065
  2. FLUDARABINE [Suspect]
     Active Substance: FLUDARABINE PHOSPHATE
     Indication: Bone marrow conditioning regimen
     Dosage: 160 MG/M2
     Route: 065
  3. SIROLIMUS [Concomitant]
     Active Substance: SIROLIMUS
     Indication: Pericardial drainage
     Dosage: UNK
     Route: 065
  4. INFLIXIMAB [Concomitant]
     Active Substance: INFLIXIMAB
     Indication: Pericardial drainage
     Dosage: UNK
     Route: 065

REACTIONS (7)
  - Nervous system disorder [Fatal]
  - Pulmonary veno-occlusive disease [Unknown]
  - Autoimmune haemolytic anaemia [Unknown]
  - Respiratory distress [Unknown]
  - Pericarditis [Unknown]
  - Organising pneumonia [Unknown]
  - Pleural effusion [Unknown]
